FAERS Safety Report 16493210 (Version 1)
Quarter: 2019Q2

REPORT INFORMATION
  Report Type: Spontaneous
  Country: NL (occurrence: RO)
  Receive Date: 20190628
  Receipt Date: 20190628
  Transmission Date: 20190711
  Serious: Yes (Hospitalization, Other)
  Sender: FDA-Public Use
  Company Number: RO-FRESENIUS KABI-FK201906886

PATIENT
  Age: 49 Year
  Sex: Female

DRUGS (4)
  1. ZOLEDRONIC ACID [Concomitant]
     Active Substance: ZOLEDRONIC ACID
     Indication: METASTASES TO BONE
     Route: 065
     Dates: start: 20171211
  2. PACLITAXEL (MANUFACTURER UNKNOWN) [Suspect]
     Active Substance: PACLITAXEL
     Indication: BREAST CANCER METASTATIC
     Route: 065
     Dates: start: 20170823, end: 20180308
  3. TRASTUZUMAB. [Suspect]
     Active Substance: TRASTUZUMAB
     Indication: BREAST CANCER METASTATIC
     Route: 065
     Dates: start: 20170823, end: 20181009
  4. ANASTROZOLE. [Concomitant]
     Active Substance: ANASTROZOLE
     Indication: BREAST CANCER METASTATIC
     Route: 065

REACTIONS (10)
  - Balance disorder [Unknown]
  - Pelvic pain [Unknown]
  - Granulocytosis [Unknown]
  - Vertigo [Unknown]
  - Disorientation [Unknown]
  - Peripheral sensory neuropathy [Unknown]
  - Hemiparesis [Unknown]
  - Leukocytosis [Unknown]
  - Blood creatinine increased [Unknown]
  - Headache [Unknown]

NARRATIVE: CASE EVENT DATE: 201712
